FAERS Safety Report 7896902-4 (Version None)
Quarter: 2011Q4

REPORT INFORMATION
  Report Type: 
  Country: None (occurrence: None)
  Receive Date: 20111104
  Receipt Date: 20111104
  Transmission Date: 20120403
  Serious: Yes (Life-Threatening, Hospitalization)
  Sender: FDA-Public Use
  Company Number: None

PATIENT
  Sex: Female
  Weight: 53.978 kg

DRUGS (1)
  1. JANUVIA [Suspect]

REACTIONS (6)
  - CHOLELITHIASIS [None]
  - NEPHROLITHIASIS [None]
  - MALAISE [None]
  - INTRACARDIAC THROMBUS [None]
  - FLUID RETENTION [None]
  - PANCREATITIS [None]
